FAERS Safety Report 6957632-6 (Version None)
Quarter: 2010Q3

REPORT INFORMATION
  Report Type: 
  Country: None (occurrence: None)
  Receive Date: 20100831
  Receipt Date: 20100818
  Transmission Date: 20110219
  Serious: No
  Sender: FDA-Public Use
  Company Number: DK-ELI_LILLY_AND_COMPANY-DK201008005644

PATIENT
  Sex: Female

DRUGS (2)
  1. CYMBALTA [Suspect]
     Indication: GENERALISED ANXIETY DISORDER
     Dosage: 90 MG, DAILY (1/D)
  2. CYMBALTA [Suspect]
     Dosage: 120 MG, DAILY (1/D)

REACTIONS (2)
  - HALLUCINATION [None]
  - HEPATIC ENZYME INCREASED [None]
